FAERS Safety Report 16063317 (Version 2)
Quarter: 2019Q2

REPORT INFORMATION
  Report Type: Report from Study
  Country: US (occurrence: US)
  Receive Date: 20190312
  Receipt Date: 20190603
  Transmission Date: 20190711
  Serious: Yes (Disabling)
  Sender: FDA-Public Use
  Company Number: US-SA-2019SA034371

PATIENT
  Age: 59 Year
  Sex: Female

DRUGS (2)
  1. INSULIN GLARGINE [Suspect]
     Active Substance: INSULIN GLARGINE
     Indication: TYPE 2 DIABETES MELLITUS
     Dosage: 150 U, QD
     Route: 058
     Dates: start: 20180129
  2. INSULIN GLARGINE [Suspect]
     Active Substance: INSULIN GLARGINE
     Dosage: 75 U, BID
     Route: 058

REACTIONS (5)
  - Disability [Not Recovered/Not Resolved]
  - Inappropriate schedule of product administration [Unknown]
  - Inability to afford medication [Unknown]
  - Nodule [Not Recovered/Not Resolved]
  - Nasopharyngitis [Not Recovered/Not Resolved]
